FAERS Safety Report 5906865-6 (Version None)
Quarter: 2008Q3

REPORT INFORMATION
  Report Type: 
  Country: None (occurrence: None)
  Receive Date: 20080929
  Receipt Date: 20080922
  Transmission Date: 20090109
  Serious: Yes (Hospitalization)
  Sender: FDA-Public Use
  Company Number: 2008BI025018

PATIENT
  Age: 41 Year
  Sex: Female

DRUGS (4)
  1. TYSABRI [Suspect]
     Indication: MULTIPLE SCLEROSIS
     Dosage: 300 MG;QM;IV
     Route: 042
     Dates: start: 20080101
  2. PREDNISONE TAB [Concomitant]
  3. COPAXONE [Concomitant]
  4. CELLCEPT [Concomitant]

REACTIONS (1)
  - HERPES SIMPLEX [None]
